FAERS Safety Report 4428132-2 (Version None)
Quarter: 2004Q3

REPORT INFORMATION
  Report Type: 
  Country: None (occurrence: None)
  Receive Date: 20040726
  Receipt Date: 20040419
  Transmission Date: 20050211
  Serious: No
  Sender: FDA-Public Use
  Company Number: USA030947944

PATIENT
  Age: 82 Year
  Sex: Female
  Weight: 55 kg

DRUGS (3)
  1. FORTEO [Suspect]
     Indication: OSTEOPOROSIS
     Dosage: 20 UG/DAY
     Dates: start: 20030701
  2. LOPID [Concomitant]
  3. MULTIVITAMIN [Concomitant]

REACTIONS (7)
  - BONE DISORDER [None]
  - HYPERKERATOSIS [None]
  - INJECTION SITE ERYTHEMA [None]
  - INJECTION SITE HAEMORRHAGE [None]
  - MACULAR DEGENERATION [None]
  - RASH PRURITIC [None]
  - VEIN DISORDER [None]
